FAERS Safety Report 5059707-8 (Version None)
Quarter: 2006Q3

REPORT INFORMATION
  Report Type: 
  Country: None (occurrence: None)
  Receive Date: 20060724
  Receipt Date: 20060704
  Transmission Date: 20061208
  Serious: Yes (Death)
  Sender: FDA-Public Use
  Company Number: JP-ROCHE-453977

PATIENT
  Age: 12 Year
  Sex: Male

DRUGS (2)
  1. TAMIFLU [Suspect]
     Route: 048
     Dates: start: 20060703, end: 20060703
  2. CALONAL [Concomitant]
     Dosage: FORMULATION: ORAL FORMULATION (NOT OTHERWISE SPECIFIED).
     Route: 048
     Dates: start: 20060703, end: 20060703

REACTIONS (6)
  - CARDIO-RESPIRATORY ARREST [None]
  - FALL [None]
  - HAEMORRHAGE [None]
  - MULTIPLE FRACTURES [None]
  - PELVIC FRACTURE [None]
  - SELF-MEDICATION [None]
